FAERS Safety Report 9302851 (Version 2)
Quarter: 2013Q3

REPORT INFORMATION
  Report Type: Spontaneous
  Country: US (occurrence: US)
  Receive Date: 20130522
  Receipt Date: 20130814
  Transmission Date: 20140515
  Serious: Yes (Hospitalization)
  Sender: FDA-Public Use
  Company Number: US-BAYER-2013-062812

PATIENT
  Age: 44 Year
  Sex: Female
  Weight: 58.96 kg

DRUGS (22)
  1. YASMIN [Suspect]
     Indication: CONTRACEPTION
     Dosage: UNK
     Dates: start: 20090902
  2. YAZ [Suspect]
     Indication: CONTRACEPTION
     Dosage: UNK
     Dates: start: 20090902
  3. SODIUM BICARBONATE [Concomitant]
  4. HYDROXYUREA [Concomitant]
  5. LOSARTAN POTASSIUM [Concomitant]
  6. FOLIC ACID [Concomitant]
  7. CARVEDILOL [Concomitant]
  8. PROMETHAZINE [Concomitant]
  9. OMEPRAZOLE [Concomitant]
  10. VITAMIN D [Concomitant]
  11. PREDNISONE [Concomitant]
  12. CIPROFLOXACIN [Concomitant]
  13. HYDROMORPHONE [Concomitant]
  14. ROCEPHIN [Concomitant]
     Dosage: UNK
     Dates: start: 20111212
  15. AZITHROMYCIN [Concomitant]
     Dosage: UNK
     Dates: start: 20111212
  16. PROTONIX [Concomitant]
  17. LASIX [Concomitant]
  18. COREG [Concomitant]
  19. NORVASC [Concomitant]
  20. IMDUR [Concomitant]
  21. HYDRALAZINE [Concomitant]
  22. DILAUDID [Concomitant]
     Dosage: UNK
     Dates: start: 20111212

REACTIONS (1)
  - Cerebrovascular accident [None]
